FAERS Safety Report 7709432-7 (Version None)
Quarter: 2011Q3

REPORT INFORMATION
  Report Type: 
  Country: None (occurrence: None)
  Receive Date: 20110825
  Receipt Date: 20110824
  Transmission Date: 20111222
  Serious: Yes (Other)
  Sender: FDA-Public Use
  Company Number: US-PFIZER INC-2011040300

PATIENT
  Sex: Female

DRUGS (1)
  1. CHANTIX [Suspect]
     Dosage: UNK
     Route: 048

REACTIONS (10)
  - SKIN DISCOLOURATION [None]
  - SKIN DISORDER [None]
  - SWELLING [None]
  - HYPERSENSITIVITY [None]
  - ALOPECIA [None]
  - PALPITATIONS [None]
  - SWELLING FACE [None]
  - EXFOLIATIVE RASH [None]
  - RASH PRURITIC [None]
  - EYE SWELLING [None]
